FAERS Safety Report 24854863 (Version 1)
Quarter: 2025Q1

REPORT INFORMATION
  Report Type: Spontaneous
  Country: US (occurrence: US)
  Receive Date: 20250117
  Receipt Date: 20250117
  Transmission Date: 20250409
  Serious: No
  Sender: CURRAX PHARMACEUTICALS
  Company Number: US-CURRAX PHARMACEUTICALS-2021-012877

PATIENT
  Age: 64 Year
  Sex: Female

DRUGS (2)
  1. CONTRAVE [Suspect]
     Active Substance: BUPROPION HYDROCHLORIDE\NALTREXONE HYDROCHLORIDE
     Indication: Product used for unknown indication
     Route: 065
     Dates: end: 20210423
  2. CONTRAVE [Suspect]
     Active Substance: BUPROPION HYDROCHLORIDE\NALTREXONE HYDROCHLORIDE
     Route: 065
     Dates: start: 20210424, end: 202104

REACTIONS (14)
  - Dry eye [Unknown]
  - Ill-defined disorder [Unknown]
  - Dyspnoea [Unknown]
  - Vision blurred [Unknown]
  - Illness [Unknown]
  - Feeling abnormal [Unknown]
  - Tremor [Unknown]
  - Palpitations [Unknown]
  - Nausea [Unknown]
  - Nervousness [Unknown]
  - Feeling jittery [Unknown]
  - Insomnia [Unknown]
  - Fatigue [Unknown]
  - Headache [Unknown]

NARRATIVE: CASE EVENT DATE: 20210424
